FAERS Safety Report 17117015 (Version 1)
Quarter: 2019Q4

REPORT INFORMATION
  Report Type: Spontaneous
  Country: US (occurrence: US)
  Receive Date: 20191205
  Receipt Date: 20191205
  Transmission Date: 20200122
  Serious: Yes (Other)
  Sender: FDA-Public Use
  Company Number: US-MELINTA THERAPEUTICS, INC-US-MLNT-19-00211

PATIENT
  Age: 65 Year
  Sex: Male

DRUGS (2)
  1. VABOMERE [Suspect]
     Active Substance: MEROPENEM\VABORBACTAM
     Indication: ESCHERICHIA PERITONITIS
     Dosage: NOT PROVIDED.
     Route: 041
  2. VABOMERE [Suspect]
     Active Substance: MEROPENEM\VABORBACTAM
     Indication: ABDOMINAL ABSCESS

REACTIONS (4)
  - Minimum inhibitory concentration increased [Unknown]
  - Off label use [Unknown]
  - Drug ineffective for unapproved indication [Unknown]
  - Abdominal abscess [Unknown]
